FAERS Safety Report 10200614 (Version 2)
Quarter: 2014Q2

REPORT INFORMATION
  Report Type: Spontaneous
  Country: US (occurrence: US)
  Receive Date: 20140528
  Receipt Date: 20140528
  Transmission Date: 20141212
  Serious: No
  Sender: FDA-Public Use
  Company Number: US-DRREDDYS-USA/USA/14/0038752

PATIENT
  Age: 67 Year
  Sex: Female
  Weight: 76.6 kg

DRUGS (6)
  1. IBANDRONATE SODIUM TABLETS 150 MG [Suspect]
     Indication: OSTEOPOROSIS
     Dosage: ONCE
     Route: 048
     Dates: start: 20140301
  2. PRAVASTATIN [Concomitant]
     Indication: BLOOD CHOLESTEROL
     Route: 065
  3. CALCIUM [Concomitant]
     Indication: PRODUCT USED FOR UNKNOWN INDICATION
     Route: 065
  4. VITAMIN D [Concomitant]
     Indication: PRODUCT USED FOR UNKNOWN INDICATION
     Route: 065
  5. METFORMIN [Concomitant]
     Indication: PRODUCT USED FOR UNKNOWN INDICATION
     Route: 065
  6. LISINOPRIL [Concomitant]
     Indication: PRODUCT USED FOR UNKNOWN INDICATION
     Route: 065

REACTIONS (4)
  - Cough [Recovered/Resolved]
  - Musculoskeletal chest pain [Recovered/Resolved]
  - Dyspnoea [Recovered/Resolved]
  - Back pain [Recovered/Resolved]
